FAERS Safety Report 10370532 (Version 1)
Quarter: 2014Q3

REPORT INFORMATION
  Report Type: Report from Study
  Country: US (occurrence: US)
  Receive Date: 20140808
  Receipt Date: 20140808
  Transmission Date: 20150326
  Serious: Yes (Death)
  Sender: FDA-Public Use
  Company Number: US-VERTEX PHARMACEUTICALS INC-2014-003393

PATIENT
  Age: 24 Year
  Sex: Female

DRUGS (1)
  1. IVACAFTOR [Suspect]
     Active Substance: IVACAFTOR
     Indication: CYSTIC FIBROSIS
     Dosage: DEDUCED DOSE 2X
     Route: 048
     Dates: start: 20130709, end: 20140202

REACTIONS (1)
  - Death [Fatal]

NARRATIVE: CASE EVENT DATE: 20140202
